FAERS Safety Report 13450283 (Version 3)
Quarter: 2017Q2

REPORT INFORMATION
  Report Type: Spontaneous
  Country: US (occurrence: US)
  Receive Date: 20170417
  Receipt Date: 20170516
  Transmission Date: 20170830
  Serious: Yes (Hospitalization, Other)
  Sender: FDA-Public Use
  Company Number: US-ASTRAZENECA-2017SE39009

PATIENT
  Age: 25190 Day
  Sex: Female
  Weight: 94.3 kg

DRUGS (14)
  1. CRESTOR [Suspect]
     Active Substance: ROSUVASTATIN CALCIUM
     Dosage: GENERIC
     Route: 048
  2. VITAMIN D3 [Concomitant]
     Active Substance: CHOLECALCIFEROL
     Route: 048
  3. ASPIRIN. [Concomitant]
     Active Substance: ASPIRIN
     Route: 048
     Dates: start: 20170405
  4. METOPROLOL TARTRATE. [Suspect]
     Active Substance: METOPROLOL TARTRATE
     Route: 048
  5. MONTELUKAST SODIUM. [Concomitant]
     Active Substance: MONTELUKAST SODIUM
     Dosage: PROBABLY BEEN TAKING THIS SINCE HER HEART PROBLEMS STARTED, 10 MG DAILY
     Route: 048
  6. LISINOPRIL. [Suspect]
     Active Substance: LISINOPRIL
     Indication: BLOOD PRESSURE ABNORMAL
     Route: 048
  7. BRILINTA [Suspect]
     Active Substance: TICAGRELOR
     Indication: CARDIAC OPERATION
     Route: 048
     Dates: start: 2012, end: 2012
  8. BRILINTA [Suspect]
     Active Substance: TICAGRELOR
     Indication: CARDIAC OPERATION
     Route: 048
     Dates: start: 20170405, end: 20170409
  9. PANTOPRAZOLE [Concomitant]
     Active Substance: PANTOPRAZOLE
     Route: 048
  10. BRILINTA [Suspect]
     Active Substance: TICAGRELOR
     Indication: STENT PLACEMENT
     Route: 048
     Dates: start: 2012, end: 2012
  11. BRILINTA [Suspect]
     Active Substance: TICAGRELOR
     Indication: STENT PLACEMENT
     Route: 048
     Dates: start: 20170405, end: 20170409
  12. SERTRALINE [Concomitant]
     Active Substance: SERTRALINE HYDROCHLORIDE
     Indication: DEPRESSION
     Route: 048
     Dates: start: 2012
  13. ASPIRIN. [Concomitant]
     Active Substance: ASPIRIN
     Route: 048
  14. FAMOTIDINE. [Concomitant]
     Active Substance: FAMOTIDINE
     Indication: GASTRIC DISORDER
     Route: 048

REACTIONS (16)
  - Pain in extremity [Not Recovered/Not Resolved]
  - Bone pain [Unknown]
  - Dysstasia [Unknown]
  - Tooth fracture [Recovered/Resolved]
  - Feeling cold [Unknown]
  - Pruritus [Not Recovered/Not Resolved]
  - Rash generalised [Not Recovered/Not Resolved]
  - Blister [Not Recovered/Not Resolved]
  - Abdominal discomfort [Not Recovered/Not Resolved]
  - Wrist fracture [Recovered/Resolved]
  - Dental caries [Not Recovered/Not Resolved]
  - Vascular occlusion [Recovering/Resolving]
  - Diarrhoea [Unknown]
  - Feeling hot [Not Recovered/Not Resolved]
  - Feeling of body temperature change [Recovered/Resolved]
  - Intentional product misuse [Unknown]

NARRATIVE: CASE EVENT DATE: 20161125
